FAERS Safety Report 11729153 (Version 2)
Quarter: 2015Q4

REPORT INFORMATION
  Report Type: Report from Study
  Country: US (occurrence: US)
  Receive Date: 20151112
  Receipt Date: 20151211
  Transmission Date: 20160304
  Serious: Yes (Other)
  Sender: FDA-Public Use
  Company Number: US-BAYER-2015-018790

PATIENT
  Age: 64 Year
  Sex: Male

DRUGS (4)
  1. NORCO [Concomitant]
     Active Substance: ACETAMINOPHEN\HYDROCODONE BITARTRATE
     Dosage: UNK
  2. FENTANYL. [Concomitant]
     Active Substance: FENTANYL
     Dosage: UNK
  3. NEXAVAR [Suspect]
     Active Substance: SORAFENIB
     Indication: HEPATIC CANCER
     Dosage: 200 MG, BID
     Route: 048
     Dates: start: 20150124, end: 20150205
  4. NEXAVAR [Suspect]
     Active Substance: SORAFENIB
     Indication: HEPATIC CANCER
     Dosage: 400 MG, BID
     Route: 048
     Dates: start: 20150206

REACTIONS (21)
  - Skin bacterial infection [None]
  - Abdominal pain upper [Not Recovered/Not Resolved]
  - Burning sensation [Not Recovered/Not Resolved]
  - Visual impairment [None]
  - Ear pain [None]
  - Skin irritation [None]
  - Blister [Recovering/Resolving]
  - Neuropathy peripheral [None]
  - Neck pain [None]
  - Skin exfoliation [None]
  - Drug dose omission [None]
  - Ear infection [None]
  - Pain in extremity [Not Recovered/Not Resolved]
  - Palmar-plantar erythrodysaesthesia syndrome [None]
  - Neuralgia [None]
  - Deafness [None]
  - Skin disorder [None]
  - Skin fissures [None]
  - Pain in extremity [None]
  - Acne [None]
  - Dry skin [None]

NARRATIVE: CASE EVENT DATE: 20150209
